FAERS Safety Report 7213892-8 (Version None)
Quarter: 2011Q1

REPORT INFORMATION
  Report Type: 
  Country: None (occurrence: None)
  Receive Date: 20110106
  Receipt Date: 20101229
  Transmission Date: 20110831
  Serious: Yes (Other)
  Sender: FDA-Public Use
  Company Number: US-ABBOTT-11P-163-0694565-00

PATIENT
  Sex: Female
  Weight: 83.99 kg

DRUGS (3)
  1. HUMIRA [Suspect]
     Dates: start: 20101101
  2. HUMIRA [Suspect]
     Indication: CROHN'S DISEASE
     Dates: start: 20100901, end: 20101101
  3. AMBIEN [Concomitant]
     Indication: INSOMNIA

REACTIONS (9)
  - PAIN IN EXTREMITY [None]
  - WEIGHT INCREASED [None]
  - HYPOAESTHESIA [None]
  - PHARYNGEAL OEDEMA [None]
  - BRONCHITIS [None]
  - PYREXIA [None]
  - DRUG INEFFECTIVE [None]
  - SWELLING FACE [None]
  - OEDEMA PERIPHERAL [None]
